FAERS Safety Report 19052562 (Version 1)
Quarter: 2021Q1

REPORT INFORMATION
  Report Type: Spontaneous
  Country: US (occurrence: US)
  Receive Date: 20210324
  Receipt Date: 20210324
  Transmission Date: 20210420
  Serious: No
  Sender: FDA-Public Use
  Company Number: US-VIELABIO-VIE-2021-US-000054

PATIENT
  Age: 56 Year
  Sex: Female

DRUGS (2)
  1. UPLIZNA [Suspect]
     Active Substance: INEBILIZUMAB-CDON
     Dosage: 300 MILLIGRAM
     Route: 042
     Dates: start: 20210309
  2. UPLIZNA [Suspect]
     Active Substance: INEBILIZUMAB-CDON
     Indication: NEUROMYELITIS OPTICA SPECTRUM DISORDER
     Dosage: 300 MILLIGRAM
     Route: 042
     Dates: start: 20210223

REACTIONS (3)
  - Headache [Not Recovered/Not Resolved]
  - Infusion site discomfort [Not Recovered/Not Resolved]
  - Vision blurred [Not Recovered/Not Resolved]

NARRATIVE: CASE EVENT DATE: 20210223
